FAERS Safety Report 9985504 (Version 1)
Quarter: 2014Q1

REPORT INFORMATION
  Report Type: Spontaneous
  Country: US (occurrence: US)
  Receive Date: 20140307
  Receipt Date: 20140307
  Transmission Date: 20141002
  Serious: No
  Sender: FDA-Public Use
  Company Number: US-GILEAD-2012-0061558

PATIENT
  Sex: Male
  Weight: 94.33 kg

DRUGS (3)
  1. TRUVADA [Suspect]
     Indication: HIV INFECTION
     Dosage: UNK
     Dates: start: 2001
  2. NORVIR [Suspect]
     Indication: HIV INFECTION
     Dosage: UNK
     Dates: end: 2007
  3. IBUPROFEN [Concomitant]
     Indication: PRODUCT USED FOR UNKNOWN INDICATION
     Dosage: 800 MG, UNK

REACTIONS (3)
  - Migraine [Unknown]
  - Blindness [Unknown]
  - Anxiety [Unknown]
